FAERS Safety Report 9702045 (Version 1)
Quarter: 2013Q4

REPORT INFORMATION
  Report Type: Spontaneous
  Country: JP (occurrence: JP)
  Receive Date: 20131121
  Receipt Date: 20131121
  Transmission Date: 20140711
  Serious: Yes (Other)
  Sender: FDA-Public Use
  Company Number: CHPA2013JP017492

PATIENT
  Sex: Female

DRUGS (1)
  1. NICOTINELL MINT NICOTINE GUM [Suspect]
     Indication: SMOKING CESSATION THERAPY
     Dosage: UNK, UNK
     Route: 048

REACTIONS (2)
  - Memory impairment [Unknown]
  - Incorrect drug administration duration [Unknown]
